FAERS Safety Report 10064274 (Version 1)
Quarter: 2014Q2

REPORT INFORMATION
  Report Type: Spontaneous
  Country: US (occurrence: None)
  Receive Date: 20140407
  Receipt Date: 20140407
  Transmission Date: 20141212
  Serious: Yes (Other)
  Sender: FDA-Public Use
  Company Number: None

PATIENT
  Age: 19 Year
  Sex: Male
  Weight: 92.08 kg

DRUGS (1)
  1. ZETIA [Suspect]
     Indication: DEAFNESS
     Dosage: 10? ONCE DAILY TAKEN BY MOUTH
     Route: 048
     Dates: start: 20140306, end: 20140320

REACTIONS (1)
  - Deafness unilateral [None]
